FAERS Safety Report 4502683-4 (Version None)
Quarter: 2004Q4

REPORT INFORMATION
  Report Type: 
  Country: None (occurrence: None)
  Receive Date: 20041110
  Receipt Date: 20040510
  Transmission Date: 20050328
  Serious: Yes (Hospitalization)
  Sender: FDA-Public Use
  Company Number: F01200401057

PATIENT
  Age: 51 Year
  Sex: Male

DRUGS (7)
  1. (OXALIPLATIN) - SOLUTION - 280 MG [Suspect]
     Indication: COLORECTAL CANCER METASTATIC
     Dosage: 280 MG Q3W, INTRAVENOUS NOS
     Route: 042
     Dates: start: 20040219, end: 20040219
  2. (CAPECITABINE) - TABLET - 2150 MG [Suspect]
     Dosage: 2150 M G FROM D1 TO D15, Q3W
     Route: 048
     Dates: start: 20040219, end: 20040307
  3. NIFEDIPINE [Concomitant]
  4. METOPROLOL FUMARATE [Concomitant]
  5. TRAMADOL [Concomitant]
  6. OMEPRAZOLE [Concomitant]
  7. MAALOX (ALUMINIUM HYDROXIDE/CALCIUM CARBONATE/MAGNESIUM HYDROXIDE) [Concomitant]

REACTIONS (7)
  - ASTHENIA [None]
  - DIARRHOEA [None]
  - FEBRILE NEUTROPENIA [None]
  - GENERAL PHYSICAL HEALTH DETERIORATION [None]
  - NEUTROPHIL COUNT INCREASED [None]
  - PANCYTOPENIA [None]
  - STAPHYLOCOCCAL INFECTION [None]
